FAERS Safety Report 7753768-0 (Version None)
Quarter: 2011Q3

REPORT INFORMATION
  Report Type: 
  Country: None (occurrence: None)
  Receive Date: 20110915
  Receipt Date: 20110904
  Transmission Date: 20111222
  Serious: Yes (Disabling, Other)
  Sender: FDA-Public Use
  Company Number: US-BAYER-2011-083383

PATIENT
  Sex: Female

DRUGS (2)
  1. MIDOL MENSTRUAL COMPLETE CAPLETS [Suspect]
     Indication: DYSMENORRHOEA
     Route: 048
  2. ALEVE (CAPLET) [Suspect]
     Indication: DYSMENORRHOEA
     Route: 048

REACTIONS (3)
  - SOMNOLENCE [None]
  - LOSS OF CONSCIOUSNESS [None]
  - IMPAIRED WORK ABILITY [None]
